FAERS Safety Report 24444768 (Version 2)
Quarter: 2024Q4

REPORT INFORMATION
  Report Type: Report from Study
  Country: ZA (occurrence: ZA)
  Receive Date: 20241016
  Receipt Date: 20241017
  Transmission Date: 20250115
  Serious: No
  Sender: ROCHE
  Company Number: ZA-ROCHE-2999258

PATIENT
  Sex: Female

DRUGS (7)
  1. MABTHERA [Suspect]
     Active Substance: RITUXIMAB
     Indication: Rheumatoid arthritis
     Dosage: REPEATED YEARLY
     Route: 041
     Dates: start: 201103
  2. PREDNISONE [Concomitant]
     Active Substance: PREDNISONE
     Dates: start: 20040101, end: 201701
  3. METHOTREXATE [Concomitant]
     Active Substance: METHOTREXATE
     Dates: start: 20050101
  4. SULFASALAZINE [Concomitant]
     Active Substance: SULFASALAZINE
     Dates: start: 20050101, end: 20081017
  5. HYDROXYCHLOROQUINE [Concomitant]
     Active Substance: HYDROXYCHLOROQUINE
     Dates: start: 20050101, end: 20070101
  6. LEFLUNOMIDE [Concomitant]
     Active Substance: LEFLUNOMIDE
     Dates: start: 20081017, end: 201102
  7. HUMIRA [Concomitant]
     Active Substance: ADALIMUMAB
     Dates: start: 20100219, end: 201012

REACTIONS (4)
  - C-reactive protein increased [Unknown]
  - Off label use [Unknown]
  - Blood creatinine increased [Unknown]
  - White blood cell count increased [Unknown]

NARRATIVE: CASE EVENT DATE: 20221205
